FAERS Safety Report 6558027-X (Version None)
Quarter: 2010Q1

REPORT INFORMATION
  Report Type: 
  Country: None (occurrence: None)
  Receive Date: 20100129
  Receipt Date: 20100120
  Transmission Date: 20100710
  Serious: Yes (Other)
  Sender: FDA-Public Use
  Company Number: US-ROCHE-681128

PATIENT
  Age: 68 Year
  Sex: Female

DRUGS (10)
  1. AVASTIN [Suspect]
     Route: 042
     Dates: start: 20060101
  2. EPIRUBICIN [Concomitant]
  3. CYTOXAN [Concomitant]
  4. TAXOTERE [Concomitant]
  5. ANASTROZOLE [Concomitant]
  6. PACLITAXEL [Concomitant]
  7. IXABEPILONE [Concomitant]
  8. GEMCITABINE [Concomitant]
  9. 5-FU [Concomitant]
  10. ABRAXANE [Concomitant]

REACTIONS (1)
  - DISEASE PROGRESSION [None]
